FAERS Safety Report 24176832 (Version 1)
Quarter: 2024Q3

REPORT INFORMATION
  Report Type: Spontaneous
  Country: US (occurrence: US)
  Receive Date: 20240806
  Receipt Date: 20240806
  Transmission Date: 20241017
  Serious: Yes (Other)
  Sender: CELLTRION
  Company Number: US-CELLTRION INC.-2024US018454

PATIENT

DRUGS (11)
  1. BEVACIZUMAB [Suspect]
     Active Substance: BEVACIZUMAB
     Indication: Hepatocellular carcinoma
     Dosage: 15 MG/KG EVERY 3 WEEKS
  2. ATEZOLIZUMAB [Suspect]
     Active Substance: ATEZOLIZUMAB
     Indication: Hepatocellular carcinoma
     Dosage: 1200 MG EVERY 3 WEEKS
  3. METFORMIN [Concomitant]
     Active Substance: METFORMIN HYDROCHLORIDE
  4. GLIMEPIRIDE [Concomitant]
     Active Substance: GLIMEPIRIDE
  5. LISINOPRIL [Concomitant]
     Active Substance: LISINOPRIL
  6. OMEPRAZOLE [Concomitant]
     Active Substance: OMEPRAZOLE
  7. GLIPIZIDE [Concomitant]
     Active Substance: GLIPIZIDE
     Dosage: UNK
  8. GLIPIZIDE [Concomitant]
     Active Substance: GLIPIZIDE
     Dosage: INCREASED TO 5 MG DAILY
  9. SITAGLIPTIN [Concomitant]
     Active Substance: SITAGLIPTIN
  10. PREDNISONE [Concomitant]
     Active Substance: PREDNISONE
     Dosage: DISCHARGED ON 80 MG OF PREDNISONE DAILY (1 MG/KG), WITH A TAPER PLAN TO BE DETERMINED AT OUTPATIENT
  11. PREDNISONE [Concomitant]
     Active Substance: PREDNISONE
     Dosage: DECREASED TO 60 MG WITH PLANS TO FURTHER TAPER

REACTIONS (6)
  - Tubulointerstitial nephritis [Unknown]
  - Asthenia [Unknown]
  - Decreased appetite [Unknown]
  - Dizziness [Unknown]
  - Fatigue [Unknown]
  - Intentional product use issue [Unknown]
